FAERS Safety Report 9254604 (Version 2)
Quarter: 2013Q2

REPORT INFORMATION
  Report Type: Spontaneous
  Country: FR (occurrence: FR)
  Receive Date: 20130425
  Receipt Date: 20130514
  Transmission Date: 20140414
  Serious: Yes (Hospitalization, Other)
  Sender: FDA-Public Use
  Company Number: FR-009507513-1304FRA008191

PATIENT
  Age: 73 Year
  Sex: Female

DRUGS (3)
  1. INEGY [Suspect]
     Dosage: 1 DF, QD
     Route: 048
     Dates: end: 20130307
  2. COLCHIMAX (COLCHICINE (+) DICYCLOMINE HYDROCHLORIDE) [Interacting]
     Dosage: 1 DF, UNK
     Route: 048
     Dates: start: 20130301, end: 20130307
  3. ADENURIC [Interacting]
     Dosage: 80 MG, UNK
     Route: 048
     Dates: start: 20130301, end: 20130307

REACTIONS (3)
  - Renal failure acute [Recovered/Resolved]
  - Hepatocellular injury [Recovered/Resolved]
  - Rhabdomyolysis [Recovered/Resolved]
